FAERS Safety Report 7359780-8 (Version None)
Quarter: 2011Q1

REPORT INFORMATION
  Report Type: 
  Country: None (occurrence: None)
  Receive Date: 20110317
  Receipt Date: 20101123
  Transmission Date: 20110831
  Serious: Yes (Hospitalization, Other)
  Sender: FDA-Public Use
  Company Number: US-BAYER-201038101NA

PATIENT
  Sex: Female
  Weight: 100 kg

DRUGS (25)
  1. OCELLA [Suspect]
     Indication: PREMENSTRUAL SYNDROME
  2. YAZ [Suspect]
     Indication: POLYCYSTIC OVARIES
     Dosage: UNK
     Dates: start: 20020101, end: 20070101
  3. ACETAMINOPHEN W/ PROPOXYPHENE HCL [Concomitant]
     Dosage: UNK
     Route: 048
     Dates: start: 20031125
  4. SPIRONOLACTONE [Concomitant]
     Dosage: 25 MG, UNK
     Route: 048
     Dates: start: 20041020
  5. CYCLOBENZAPRINE [Concomitant]
     Dosage: 10 MG, UNK
     Route: 048
     Dates: start: 20070811
  6. YASMIN [Suspect]
     Indication: POLYCYSTIC OVARIES
     Dosage: UNK
     Dates: start: 20020101, end: 20070101
  7. ACETAMINOPHEN W/ PROPOXYPHENE HCL [Concomitant]
     Dosage: UNK
     Route: 048
     Dates: start: 20050802
  8. CYCLOBENZAPRINE [Concomitant]
     Dosage: 10 MG, UNK
     Route: 048
     Dates: start: 20040730
  9. OCELLA [Suspect]
     Indication: POLYCYSTIC OVARIES
     Dosage: UNK
     Dates: start: 20020101, end: 20070101
  10. ACETAMINOPHEN W/ PROPOXYPHENE HCL [Concomitant]
     Dosage: UNK
     Route: 048
     Dates: start: 20050506
  11. ACETAMINOPHEN W/ PROPOXYPHENE HCL [Concomitant]
     Dosage: UNK
     Route: 048
     Dates: start: 20060208
  12. YASMIN [Suspect]
     Indication: PREMENSTRUAL SYNDROME
  13. CEPHALEXIN [Concomitant]
     Dosage: 500 MG, UNK
     Route: 048
     Dates: start: 20080327
  14. ADVIL LIQUI-GELS [Concomitant]
     Indication: MIGRAINE
  15. CEPHALEXIN [Concomitant]
     Dosage: 500 MG, UNK
     Route: 048
     Dates: start: 20071029
  16. YAZ [Suspect]
     Indication: PREMENSTRUAL SYNDROME
  17. ACETAMINOPHEN W/ PROPOXYPHENE HCL [Concomitant]
     Dosage: UNK
     Route: 048
     Dates: start: 20040710
  18. ACETAMINOPHEN W/ PROPOXYPHENE HCL [Concomitant]
     Dosage: UNK
     Route: 048
     Dates: start: 20040730
  19. PHENTERMINE [Concomitant]
     Dosage: 30 MG, UNK
     Route: 048
     Dates: start: 20041020
  20. CEPHALEXIN [Concomitant]
     Dosage: 500 MG, UNK
     Route: 048
     Dates: start: 20070110
  21. CYCLOBENZAPRINE [Concomitant]
     Dosage: 10 MG, UNK
     Route: 048
     Dates: start: 20050506
  22. CYCLOBENZAPRINE [Concomitant]
     Dosage: 10 MG, UNK
     Route: 048
     Dates: start: 20050802
  23. EXCEDRIN [ACETYLSALICYLIC ACID,CAFFEINE,PARACETAMOL] [Concomitant]
     Indication: MIGRAINE
  24. TOURO LA-LD [Concomitant]
     Dosage: UNK
     Dates: start: 20041201
  25. NEXIUM [Concomitant]

REACTIONS (2)
  - CARDIAC DISORDER [None]
  - CHOLECYSTITIS CHRONIC [None]
